FAERS Safety Report 8054852-7 (Version None)
Quarter: 2012Q1

REPORT INFORMATION
  Report Type: 
  Country: None (occurrence: None)
  Receive Date: 20120119
  Receipt Date: 20120113
  Transmission Date: 20120608
  Serious: Yes (Hospitalization, Other)
  Sender: FDA-Public Use
  Company Number: JP-JNJFOC-20111108417

PATIENT
  Sex: Male
  Weight: 2.46 kg

DRUGS (5)
  1. FENTANYL-100 [Suspect]
     Indication: FOETAL EXPOSURE DURING PREGNANCY
     Route: 064
     Dates: start: 20050101, end: 20111027
  2. FENTANYL CITRATE [Suspect]
     Indication: FOETAL EXPOSURE DURING PREGNANCY
     Route: 064
     Dates: start: 20111025, end: 20111025
  3. ULTIVA [Suspect]
     Indication: FOETAL EXPOSURE DURING PREGNANCY
     Route: 064
     Dates: start: 20111025, end: 20111025
  4. METOCLOPRAMIDE [Suspect]
     Indication: FOETAL EXPOSURE DURING PREGNANCY
     Route: 064
  5. MORPHINE HCL ELIXIR [Suspect]
     Indication: FOETAL EXPOSURE DURING PREGNANCY
     Route: 064
     Dates: start: 20050101

REACTIONS (16)
  - TRANSIENT TACHYPNOEA OF THE NEWBORN [None]
  - VOMITING NEONATAL [None]
  - FEEDING DISORDER NEONATAL [None]
  - TREMOR NEONATAL [None]
  - ANTICONVULSANT DRUG LEVEL INCREASED [None]
  - MEAN CELL HAEMOGLOBIN INCREASED [None]
  - PREMATURE BABY [None]
  - FEEDING DISORDER [None]
  - VOMITING [None]
  - IRRITABILITY [None]
  - DRUG WITHDRAWAL SYNDROME NEONATAL [None]
  - MATERNAL DRUGS AFFECTING FOETUS [None]
  - BLOOD SODIUM INCREASED [None]
  - CAESAREAN SECTION [None]
  - MUSCLE TIGHTNESS [None]
  - HYPERREFLEXIA [None]
